FAERS Safety Report 12640551 (Version 1)
Quarter: 2016Q3

REPORT INFORMATION
  Report Type: Spontaneous
  Country: BR (occurrence: BR)
  Receive Date: 20160810
  Receipt Date: 20160810
  Transmission Date: 20161109
  Serious: Yes (Other)
  Sender: FDA-Public Use
  Company Number: BR-PFIZER INC-2016374230

PATIENT
  Age: 61 Year
  Sex: Male
  Weight: 64 kg

DRUGS (7)
  1. LIPITOR [Suspect]
     Active Substance: ATORVASTATIN CALCIUM
     Dosage: 1 TABLET 20 MG, PER DAY
     Route: 048
     Dates: start: 201604, end: 201605
  2. LIPITOR [Suspect]
     Active Substance: ATORVASTATIN CALCIUM
     Indication: BLOOD CHOLESTEROL
     Dosage: 1 TABLET 80 MG, PER DAY
     Route: 048
     Dates: start: 2006
  3. VASTAREL [Concomitant]
     Active Substance: TRIMETAZIDINE DIHYDROCHLORIDE
     Indication: CARDIAC DISORDER
     Dosage: 1 TABLET PER DAY
     Route: 048
     Dates: start: 2002
  4. AAS PROTECT [Concomitant]
     Active Substance: ASPIRIN
     Indication: ANTICOAGULANT THERAPY
     Dosage: 2 TABLETS, PER DAY
     Route: 048
     Dates: start: 2002
  5. TORLOS [Concomitant]
     Indication: HYPERTENSION
     Dosage: 1 TABLET PER DAY
     Route: 048
     Dates: start: 2009
  6. LIPITOR [Suspect]
     Active Substance: ATORVASTATIN CALCIUM
     Dosage: 1 TABLET 40 MG, PER DAY
     Route: 048
     Dates: start: 2012
  7. SELOZOK [Concomitant]
     Active Substance: METOPROLOL SUCCINATE
     Indication: HEART RATE IRREGULAR
     Dosage: 1 TABLET PER DAY
     Route: 048
     Dates: start: 2003

REACTIONS (3)
  - Arterial disorder [Unknown]
  - Arterial occlusive disease [Unknown]
  - Drug ineffective [Unknown]

NARRATIVE: CASE EVENT DATE: 201604
